FAERS Safety Report 20236617 (Version 1)
Quarter: 2021Q4

REPORT INFORMATION
  Report Type: Spontaneous
  Country: US (occurrence: None)
  Receive Date: 20211227
  Receipt Date: 20211227
  Transmission Date: 20220303
  Serious: Yes (Death)
  Sender: FDA-Public Use
  Company Number: None

PATIENT
  Age: 68 Year
  Sex: Female
  Weight: 57.6 kg

DRUGS (20)
  1. HYCAMTIN [Suspect]
     Active Substance: TOPOTECAN HYDROCHLORIDE
     Indication: Neuroendocrine tumour
     Dosage: OTHER FREQUENCY : DAILY FOR 5 DAYS;?
     Route: 048
     Dates: start: 20210629, end: 20211224
  2. ONDANSETRON [Concomitant]
     Active Substance: ONDANSETRON
  3. PANTOPRAZOLE [Concomitant]
     Active Substance: PANTOPRAZOLE
  4. POTASSIUM CHLORIDE [Concomitant]
     Active Substance: POTASSIUM CHLORIDE
  5. PROMETHAZINE [Concomitant]
     Active Substance: PROMETHAZINE HYDROCHLORIDE
  6. RANOLAZINE [Concomitant]
     Active Substance: RANOLAZINE
  7. SUCRALFATE [Concomitant]
     Active Substance: SUCRALFATE
  8. TOPOTECAN [Concomitant]
     Active Substance: TOPOTECAN HYDROCHLORIDE
  9. ALLOPURINOL [Concomitant]
     Active Substance: ALLOPURINOL
  10. NORVASC [Concomitant]
     Active Substance: AMLODIPINE BESYLATE
  11. ATORVASTATIN [Concomitant]
     Active Substance: ATORVASTATIN
  12. VITAMIN D3 [Concomitant]
     Active Substance: CHOLECALCIFEROL
  13. VOLTAREN [Concomitant]
     Active Substance: DICLOFENAC SODIUM
  14. COLACE [Concomitant]
     Active Substance: DOCUSATE SODIUM
  15. JARDIANCE [Concomitant]
     Active Substance: EMPAGLIFLOZIN
  16. FERROUS SULFATE [Concomitant]
     Active Substance: FERROUS SULFATE
  17. flutciaseone [Concomitant]
  18. GLIPIZIDE [Concomitant]
     Active Substance: GLIPIZIDE
  19. LANTUS [Concomitant]
     Active Substance: INSULIN GLARGINE
  20. METOPROLOL [Concomitant]
     Active Substance: METOPROLOL

REACTIONS (1)
  - Death [None]

NARRATIVE: CASE EVENT DATE: 20211224
